FAERS Safety Report 17282218 (Version 1)
Quarter: 2020Q1

REPORT INFORMATION
  Report Type: Spontaneous
  Country: DE (occurrence: DE)
  Receive Date: 20200117
  Receipt Date: 20200117
  Transmission Date: 20200409
  Serious: Yes (Other)
  Sender: FDA-Public Use
  Company Number: DE-ASTRAZENECA-2020SE05954

PATIENT
  Sex: Female

DRUGS (3)
  1. SYMBICORT [Suspect]
     Active Substance: BUDESONIDE\FORMOTEROL FUMARATE DIHYDRATE
     Dosage: 160.0 / 4.5 ?G SPORADICALLY UNKNOWN
     Route: 055
  2. SYMBICORT [Suspect]
     Active Substance: BUDESONIDE\FORMOTEROL FUMARATE DIHYDRATE
     Dosage: 160.0 / 4.5 ?G (TWO TIMES IN THE MORNING AND TWO TIMES IN THE EVENING) UNKNOWN
     Route: 055
  3. SYMBICORT [Suspect]
     Active Substance: BUDESONIDE\FORMOTEROL FUMARATE DIHYDRATE
     Dosage: 160.0 / 4.5 ?G (DOSAGE REDUCTION TO ONE TIME IN THE MORNING AND ONE TIME IN THE EVENING) UNKNOWN
     Route: 055

REACTIONS (3)
  - Eye pain [Unknown]
  - Visual impairment [Unknown]
  - Cough [Unknown]
